FAERS Safety Report 7348267-4 (Version None)
Quarter: 2011Q1

REPORT INFORMATION
  Report Type: 
  Country: None (occurrence: None)
  Receive Date: 20110303
  Receipt Date: 20110221
  Transmission Date: 20110831
  Serious: Yes (Other)
  Sender: FDA-Public Use
  Company Number: 2011SP008131

PATIENT
  Age: 45 Year
  Sex: Female
  Weight: 70 kg

DRUGS (2)
  1. IMPLANON [Suspect]
     Indication: CONTRACEPTION
     Dates: start: 20101014, end: 20110215
  2. IMPLANON [Suspect]

REACTIONS (8)
  - HEADACHE [None]
  - SENSATION OF HEAVINESS [None]
  - WEIGHT INCREASED [None]
  - VERTIGO [None]
  - TACHYCARDIA [None]
  - PAIN IN EXTREMITY [None]
  - HYPERTENSION [None]
  - CONDITION AGGRAVATED [None]
